FAERS Safety Report 6127356-6 (Version None)
Quarter: 2009Q1

REPORT INFORMATION
  Report Type: 
  Country: None (occurrence: None)
  Receive Date: 20090319
  Receipt Date: 20090303
  Transmission Date: 20090719
  Serious: Yes (Life-Threatening, Hospitalization)
  Sender: FDA-Public Use
  Company Number: 2007S1007467

PATIENT
  Age: 64 Year
  Sex: Female
  Weight: 59.8748 kg

DRUGS (12)
  1. PHOSPHOSODA FLAVOR NOT SPECIFIED [Suspect]
     Indication: COLONOSCOPY
     Dosage: 90 ML; X1; PO
     Route: 048
     Dates: start: 20070306, end: 20070306
  2. PREVACID [Concomitant]
  3. ASPIRIN [Concomitant]
  4. WELLBUTRIN [Concomitant]
  5. WAL-ITIN [Concomitant]
  6. LISINOPRIL [Concomitant]
  7. ZYPREXA [Concomitant]
  8. ZOLPIDEM TARTRATE [Concomitant]
  9. LORAZEPAM [Concomitant]
  10. GLYBURIDE [Concomitant]
  11. DOCULACE [Concomitant]
  12. ACTONEL [Concomitant]

REACTIONS (13)
  - ASTHENIA [None]
  - DRUG TOXICITY [None]
  - FATIGUE [None]
  - HYPERPHOSPHATAEMIA [None]
  - INFLUENZA LIKE ILLNESS [None]
  - NAUSEA [None]
  - NEPHROCALCINOSIS [None]
  - PARAESTHESIA [None]
  - PRODUCT QUALITY ISSUE [None]
  - RENAL FAILURE ACUTE [None]
  - RENAL INJURY [None]
  - RENAL TUBULAR DISORDER [None]
  - THIRST [None]
